FAERS Safety Report 9720498 (Version 1)
Quarter: 2013Q4

REPORT INFORMATION
  Report Type: Spontaneous
  Country: BR (occurrence: BR)
  Receive Date: 20131129
  Receipt Date: 20131129
  Transmission Date: 20140711
  Serious: Yes (Other)
  Sender: FDA-Public Use
  Company Number: BR-JNJFOC-20131115013

PATIENT
  Age: 23 Year
  Sex: Female
  Weight: 54 kg

DRUGS (1)
  1. TYLEX [Suspect]
     Indication: PROCEDURAL PAIN
     Route: 065
     Dates: start: 20131120, end: 20131121

REACTIONS (5)
  - Tachycardia [Unknown]
  - Vision blurred [Unknown]
  - Cold sweat [Unknown]
  - Medication error [Unknown]
  - Nausea [Unknown]
